FAERS Safety Report 10229391 (Version 1)
Quarter: 2014Q2

REPORT INFORMATION
  Report Type: Spontaneous
  Country: US (occurrence: US)
  Receive Date: 20140611
  Receipt Date: 20140611
  Transmission Date: 20141212
  Serious: Yes (Death, Hospitalization, Other)
  Sender: FDA-Public Use
  Company Number: US-AMGEN INC.-USASP2014042346

PATIENT
  Age: 42 Year
  Sex: Female

DRUGS (2)
  1. NEULASTA [Suspect]
     Indication: NEUTROPENIA
     Dosage: UNK
     Route: 065
  2. BLEOMYCIN [Concomitant]
     Indication: OVARIAN CANCER
     Dosage: UNK

REACTIONS (2)
  - Death [Fatal]
  - Pulmonary toxicity [Unknown]
